FAERS Safety Report 8353034 (Version 7)
Quarter: 2012Q4

REPORT INFORMATION
  Report Type: 
  Country: US (occurrence: US)
  Receive Date: 20120125
  Receipt Date: 20121121
  Transmission Date: 20130627
  Serious: Yes (Other)
  Sender: FDA-Public Use
  Company Number: US-BIOGENIDEC-2012BI002273

PATIENT
  Age: 45 Year
  Sex: Female

DRUGS (6)
  1. TYSABRI [Suspect]
     Indication: MULTIPLE SCLEROSIS
     Route: 042
     Dates: start: 20100426
  2. SYNTHROID [Concomitant]
     Route: 048
  3. VENTOLIN INHALER [Concomitant]
     Indication: WHEEZING
  4. VITAMIN D [Concomitant]
     Route: 048
  5. BIOTIN [Concomitant]
     Route: 048
  6. TYLENOL [Concomitant]
     Indication: PREMEDICATION
     Route: 048

REACTIONS (1)
  - Breast cancer [Not Recovered/Not Resolved]
